FAERS Safety Report 12012842 (Version 2)
Quarter: 2016Q2

REPORT INFORMATION
  Report Type: Spontaneous
  Country: US (occurrence: US)
  Receive Date: 20160205
  Receipt Date: 20160513
  Transmission Date: 20160815
  Serious: Yes (Hospitalization, Other)
  Sender: FDA-Public Use
  Company Number: US-009507513-1602USA003626

PATIENT
  Sex: Male

DRUGS (2)
  1. JANUVIA [Suspect]
     Active Substance: SITAGLIPTIN PHOSPHATE
     Dosage: 100 MG, QD
     Route: 048
     Dates: start: 20070426, end: 20080630
  2. BYETTA [Suspect]
     Active Substance: EXENATIDE
     Dosage: 10 MICROGRAM, QD
     Dates: start: 20080630, end: 20091213

REACTIONS (8)
  - Diabetes mellitus [Unknown]
  - Rectal haemorrhage [Unknown]
  - Adenocarcinoma pancreas [Unknown]
  - Pancreatitis chronic [Not Recovered/Not Resolved]
  - Synovitis [Unknown]
  - Chondropathy [Unknown]
  - Arthropathy [Unknown]
  - Meniscus injury [Unknown]

NARRATIVE: CASE EVENT DATE: 20131010
